FAERS Safety Report 12247125 (Version 1)
Quarter: 2016Q2

REPORT INFORMATION
  Report Type: Spontaneous
  Country: US (occurrence: US)
  Receive Date: 20160407
  Receipt Date: 20160407
  Transmission Date: 20160815
  Serious: Yes (Other)
  Sender: FDA-Public Use
  Company Number: US-MYLANLABS-2016M1013739

PATIENT

DRUGS (4)
  1. APTIOM [Suspect]
     Active Substance: ESLICARBAZEPINE ACETATE
     Indication: PARTIAL SEIZURES
     Dosage: 400 MG, QD
     Route: 048
     Dates: start: 20151228
  2. APTIOM [Suspect]
     Active Substance: ESLICARBAZEPINE ACETATE
     Dosage: 600 MG, UNK
     Route: 048
  3. APTIOM [Suspect]
     Active Substance: ESLICARBAZEPINE ACETATE
     Dosage: 800 MG, UNK
     Route: 048
     Dates: start: 201602
  4. TOPIRAMATE. [Suspect]
     Active Substance: TOPIRAMATE
     Dosage: UNK

REACTIONS (12)
  - Vertigo [Not Recovered/Not Resolved]
  - Nausea [Not Recovered/Not Resolved]
  - Somnolence [Not Recovered/Not Resolved]
  - Feeling abnormal [Not Recovered/Not Resolved]
  - Mental impairment [Unknown]
  - Emotional distress [Unknown]
  - Crying [Unknown]
  - Seizure like phenomena [Unknown]
  - Cognitive disorder [Unknown]
  - Hangover [Unknown]
  - Headache [Not Recovered/Not Resolved]
  - Dizziness [Unknown]
